FAERS Safety Report 7506142-6 (Version None)
Quarter: 2011Q2

REPORT INFORMATION
  Report Type: 
  Country: None (occurrence: None)
  Receive Date: 20110526
  Receipt Date: 20110516
  Transmission Date: 20111010
  Serious: Yes (Other)
  Sender: FDA-Public Use
  Company Number: US-AMGEN-USASP2011005192

PATIENT
  Age: 51 Year
  Sex: Female
  Weight: 76.19 kg

DRUGS (2)
  1. ENBREL [Suspect]
     Indication: JUVENILE ARTHRITIS
  2. ENBREL [Suspect]
     Indication: RHEUMATOID ARTHRITIS
     Dosage: 50 MG, QWK
     Route: 058
     Dates: start: 20101214

REACTIONS (7)
  - NERVE INJURY [None]
  - PARALYSIS [None]
  - SENSORY DISTURBANCE [None]
  - MUSCULAR WEAKNESS [None]
  - INJECTION SITE PAIN [None]
  - VISION BLURRED [None]
  - VISUAL IMPAIRMENT [None]
